FAERS Safety Report 9725489 (Version 1)
Quarter: 2013Q4

REPORT INFORMATION
  Report Type: Spontaneous
  Country: US (occurrence: None)
  Receive Date: 20131127
  Receipt Date: 20131127
  Transmission Date: 20140711
  Serious: Yes (Other)
  Sender: FDA-Public Use
  Company Number: 2013-US-003504

PATIENT
  Age: 64 Year
  Sex: Female
  Weight: 53.5 kg

DRUGS (12)
  1. XYREM (SODIUM OXYBATE) ORAL SOLUTION, 500MG/ML [Suspect]
     Indication: PRODUCT USED FOR UNKNOWN INDICATION
     Dosage: 3 G, BID, ORAL
     Route: 048
     Dates: start: 200210
  2. PROVIGIL (MODAFINIL) [Concomitant]
  3. CLONAZEPAM (CLONAZEPAM) (CLONAZEPAM) [Concomitant]
  4. SYNTHROID (LEVOTHYROXINE SODIUM) [Concomitant]
  5. PREMARIN (ESTROGENS CONJUGATED) [Concomitant]
  6. ARICEPT (DONEPEZIL HYDROCHLORIDE) [Concomitant]
  7. ATORVASTATIN (ATORVASTATIN CALCIUM) [Concomitant]
  8. ALENDRONATE (ALENDRONATE SODIUM) [Concomitant]
  9. LISINOPRIL (LISINOPRIL) [Concomitant]
  10. HYDROCODONE/APAP (HYDROCODONE BITARTRATE, PARACETAMOL) [Concomitant]
  11. GABAPENTIN (GABAPENTIN) [Concomitant]
  12. CYCLOBENZAPRINE (CYCLOBENZAPRINE HYDROCHLORIDE) [Concomitant]

REACTIONS (1)
  - Cataract [None]
